FAERS Safety Report 9887344 (Version 1)
Quarter: 2014Q1

REPORT INFORMATION
  Report Type: Spontaneous
  Country: RU (occurrence: RU)
  Receive Date: 20140211
  Receipt Date: 20140211
  Transmission Date: 20141002
  Serious: Yes (Hospitalization, Other)
  Sender: FDA-Public Use
  Company Number: RU-AMGEN-RUSSP2014007971

PATIENT
  Age: 11 Year
  Sex: Female

DRUGS (2)
  1. NPLATE [Suspect]
     Indication: PRODUCT USED FOR UNKNOWN INDICATION
     Route: 065
  2. TACROLIMUS [Concomitant]
     Dosage: UNK
     Dates: end: 20140128

REACTIONS (8)
  - Complications of bone marrow transplant [Not Recovered/Not Resolved]
  - Haemolysis [Unknown]
  - Haemoglobin abnormal [Unknown]
  - Asthenia [Unknown]
  - Vomiting [Unknown]
  - Nausea [Unknown]
  - Feeling abnormal [Unknown]
  - Body temperature increased [Unknown]
